FAERS Safety Report 4283164-2 (Version None)
Quarter: 2004Q1

REPORT INFORMATION
  Report Type: 
  Country: None (occurrence: None)
  Receive Date: 20040122
  Receipt Date: 20040106
  Transmission Date: 20041129
  Serious: Yes (Hospitalization)
  Sender: FDA-Public Use
  Company Number: 601046

PATIENT
  Age: 44 Year
  Sex: Female
  Weight: 59 kg

DRUGS (1)
  1. GAMMAGARD S/D [Suspect]
     Indication: HYPOGAMMAGLOBULINAEMIA
     Dosage: 30 GM; INTRAVENOUS
     Route: 042

REACTIONS (4)
  - CEREBRAL ARTERY OCCLUSION [None]
  - DIPLEGIA [None]
  - DYSARTHRIA [None]
  - MEDICATION ERROR [None]
